FAERS Safety Report 21391429 (Version 1)
Quarter: 2022Q3

REPORT INFORMATION
  Report Type: Spontaneous
  Country: US (occurrence: None)
  Receive Date: 20220928
  Receipt Date: 20220928
  Transmission Date: 20221027
  Serious: Yes (unspecified)
  Sender: FDA-Public Use
  Company Number: None

PATIENT
  Age: 39 Year
  Sex: Female

DRUGS (23)
  1. HUMIRA [Suspect]
     Active Substance: ADALIMUMAB
  2. COSMETICS [Suspect]
     Active Substance: COSMETICS
  3. AZITHROMYCIN ANHYDROUS [Concomitant]
     Active Substance: AZITHROMYCIN ANHYDROUS
  4. Clindamycin 1% pledgets [Concomitant]
  5. OXYBUTYNIN [Concomitant]
     Active Substance: OXYBUTYNIN
  6. XOLAIR [Concomitant]
     Active Substance: OMALIZUMAB
  7. Colchine 0.6mg [Concomitant]
  8. CYANOCOBALAMIN 1000MCG/ML INJ, 1ML [Concomitant]
  9. MONTELUKAST\MONTELUKAST SODIUM [Concomitant]
     Active Substance: MONTELUKAST\MONTELUKAST SODIUM
  10. LOSARTAN POTASSIUM [Concomitant]
     Active Substance: LOSARTAN POTASSIUM
  11. METFORMIN HYDROCHLORIDE [Concomitant]
     Active Substance: METFORMIN HYDROCHLORIDE
  12. NEXIUM ZUMG CAPSULES [Concomitant]
  13. GLYCOPYRROLATE [Concomitant]
     Active Substance: GLYCOPYRROLATE
  14. FOLIC ACID [Concomitant]
     Active Substance: FOLIC ACID
  15. OMEGA-3-ACID 1GM CAPSULES (RX) [Concomitant]
  16. ZOFRAN 4MG TABLETS [Concomitant]
  17. SPIRONOLACTONE 50MG TABLETS [Concomitant]
  18. METOPROLOL ER SUCCINATE 50MG TABS [Concomitant]
  19. CETIRIZINE10MG TABLETS [Concomitant]
  20. LEXAPRO ZOMG TABLETS [Concomitant]
  21. ADVAIR DISKUS 250/50MCG (YELLOW) 60 [Concomitant]
  22. ALBUTEROL HFA INH (200 PUFFS)6.7GM [Concomitant]
  23. FAMOTIDINE [Concomitant]
     Active Substance: FAMOTIDINE

REACTIONS (1)
  - Condition aggravated [None]

NARRATIVE: CASE EVENT DATE: 20220927
